FAERS Safety Report 5966282-X (Version None)
Quarter: 2008Q4

REPORT INFORMATION
  Report Type: 
  Country: None (occurrence: None)
  Receive Date: 20081125
  Receipt Date: 20081114
  Transmission Date: 20090506
  Serious: Yes (Hospitalization, Disabling)
  Sender: FDA-Public Use
  Company Number: US-ELI_LILLY_AND_COMPANY-US200811003454

PATIENT
  Sex: Male

DRUGS (6)
  1. ZYPREXA [Suspect]
     Indication: BIPOLAR DISORDER
     Dosage: 1 D/F, UNK
  2. ZYPREXA [Suspect]
     Dosage: 10 MG, DAILY (1/D)
     Dates: start: 20081111
  3. SEROQUEL [Concomitant]
  4. ATIVAN [Concomitant]
  5. DEPAKOTE [Concomitant]
  6. TRAZODONE HCL [Concomitant]

REACTIONS (7)
  - EXOSTOSIS [None]
  - FALL [None]
  - HOSPITALISATION [None]
  - JOINT INJURY [None]
  - MENTAL STATUS CHANGES [None]
  - MUSCULOSKELETAL PAIN [None]
  - MYOCARDIAL INFARCTION [None]
